FAERS Safety Report 9924996 (Version 1)
Quarter: 2014Q1

REPORT INFORMATION
  Report Type: Spontaneous
  Country: US (occurrence: US)
  Receive Date: 20140226
  Receipt Date: 20140226
  Transmission Date: 20141002
  Serious: Yes (Other)
  Sender: FDA-Public Use
  Company Number: US-ASTRAZENECA-2014SE11893

PATIENT
  Age: 53 Year
  Sex: Male
  Weight: 73.5 kg

DRUGS (18)
  1. SEROQUEL XR [Suspect]
     Indication: SCHIZOAFFECTIVE DISORDER
     Dosage: UNKNOWN HS
     Route: 048
  2. SEROQUEL XR [Suspect]
     Indication: SLEEP DISORDER
     Dosage: UNKNOWN HS
     Route: 048
  3. SEROQUEL XR [Suspect]
     Indication: SCHIZOAFFECTIVE DISORDER
     Route: 048
     Dates: start: 20140126
  4. SEROQUEL XR [Suspect]
     Indication: SLEEP DISORDER
     Route: 048
     Dates: start: 20140126
  5. SEROQUEL XR [Suspect]
     Indication: SCHIZOAFFECTIVE DISORDER
     Route: 048
     Dates: start: 20140127, end: 20140216
  6. SEROQUEL XR [Suspect]
     Indication: SLEEP DISORDER
     Route: 048
     Dates: start: 20140127, end: 20140216
  7. SEROQUEL XR [Suspect]
     Indication: SCHIZOAFFECTIVE DISORDER
     Dosage: 50 MG OR 100 MG
     Route: 048
  8. SEROQUEL XR [Suspect]
     Indication: SLEEP DISORDER
     Dosage: 50 MG OR 100 MG
     Route: 048
  9. HYDROCODONE [Concomitant]
     Indication: PROCEDURAL PAIN
     Dosage: 10-25 NR
     Route: 048
     Dates: start: 2012
  10. TIZADINE [Concomitant]
     Indication: MUSCLE SPASMS
     Dosage: UNKNOWN NR
     Route: 048
  11. TRAZADONE [Concomitant]
     Indication: BIPOLAR DISORDER
     Route: 048
     Dates: start: 201311
  12. EETHANECHOL [Concomitant]
     Indication: NERVE INJURY
     Route: 048
  13. GABAPENTIN [Concomitant]
     Indication: NERVE INJURY
     Route: 048
  14. VENLAFAXINE HYDROCHLORIDE [Concomitant]
     Indication: DEPRESSION
     Route: 048
  15. DIFLUNISAL [Concomitant]
     Route: 048
  16. DULCOLAX [Concomitant]
     Indication: GASTROINTESTINAL MOTILITY DISORDER
     Dosage: NR QOD
     Route: 048
  17. LORAZEPAM [Concomitant]
     Indication: ANXIETY
     Route: 048
  18. LORAZEPAM [Concomitant]
     Indication: PAIN
     Route: 048

REACTIONS (5)
  - Road traffic accident [Unknown]
  - Insomnia [Recovered/Resolved]
  - Somnolence [Unknown]
  - Sedation [Unknown]
  - Intentional drug misuse [Unknown]
